FAERS Safety Report 4546358-4 (Version None)
Quarter: 2005Q1

REPORT INFORMATION
  Report Type: 
  Country: None (occurrence: None)
  Receive Date: 20050103
  Receipt Date: 20041228
  Transmission Date: 20050727
  Serious: Yes (Other)
  Sender: FDA-Public Use
  Company Number: 2004118999

PATIENT
  Age: 51 Year
  Sex: Male

DRUGS (6)
  1. LIPITOR [Suspect]
     Indication: ILL-DEFINED DISORDER
     Dosage: 10 MG (1 IN 1 D), ORAL
     Route: 048
     Dates: start: 20041126
  2. ZONISAMIDE (ZONISAMIDE) [Concomitant]
  3. ASPIRIN [Concomitant]
  4. NICARDIPINE HCL [Concomitant]
  5. REBAMIPIDE (REBAMIPIDE) [Concomitant]
  6. LACTOBACILLUS BIFIDUS, LYOPHILIZED (LACTOBACILLUS BIFIDUS, LYOPHILIZED [Concomitant]

REACTIONS (1)
  - CONVULSION [None]
